FAERS Safety Report 16410125 (Version 2)
Quarter: 2020Q2

REPORT INFORMATION
  Report Type: Spontaneous
  Country: NZ (occurrence: NZ)
  Receive Date: 20190610
  Receipt Date: 20200417
  Transmission Date: 20200713
  Serious: Yes (Hospitalization, Other)
  Sender: FDA-Public Use
  Company Number: NZ-APOTEX-2019AP015789

PATIENT
  Sex: Male

DRUGS (2)
  1. APO-AMLODIPINE [Suspect]
     Active Substance: AMLODIPINE BESYLATE
     Indication: BLOOD PRESSURE ABNORMAL
     Dosage: 5 MG, QD
     Route: 048
     Dates: start: 20190211, end: 20190529
  2. APO DOXAZOSIN [Concomitant]
     Indication: PRODUCT USED FOR UNKNOWN INDICATION
     Dosage: 2 MG, UNK
     Route: 048

REACTIONS (15)
  - Dizziness [Unknown]
  - Pruritus [Unknown]
  - Tremor [Unknown]
  - Drug ineffective [Unknown]
  - Cerebrovascular accident [Unknown]
  - Muscle spasms [Unknown]
  - Nausea [Unknown]
  - Parkinson^s disease [Unknown]
  - Vision blurred [Unknown]
  - Gait disturbance [Unknown]
  - Dyspnoea [Unknown]
  - Blood pressure increased [Unknown]
  - Dysstasia [Unknown]
  - Movement disorder [Unknown]
  - Abdominal pain upper [Unknown]

NARRATIVE: CASE EVENT DATE: 20190211
